FAERS Safety Report 7590789-5 (Version None)
Quarter: 2011Q3

REPORT INFORMATION
  Report Type: 
  Country: None (occurrence: None)
  Receive Date: 20110705
  Receipt Date: 20110629
  Transmission Date: 20111222
  Serious: Yes (Hospitalization, Other)
  Sender: FDA-Public Use
  Company Number: BR-PFIZER INC-2011118703

PATIENT
  Age: 85 Year
  Sex: Female

DRUGS (2)
  1. LEXAPRO [Concomitant]
     Indication: BIPOLAR DISORDER
     Dosage: UNK
  2. LYRICA [Suspect]
     Dosage: 75 MG, 1X/DAY AT NIGHT
     Route: 048

REACTIONS (1)
  - ATRIAL FIBRILLATION [None]
